FAERS Safety Report 8395837-0 (Version None)
Quarter: 2012Q2

REPORT INFORMATION
  Report Type: 
  Country: None (occurrence: None)
  Receive Date: 20120530
  Receipt Date: 20120521
  Transmission Date: 20120825
  Serious: Yes (Other)
  Sender: FDA-Public Use
  Company Number: FR-US-EMD SERONO, INC.-7128981

PATIENT
  Age: 48 Year
  Sex: Female

DRUGS (3)
  1. ACETAMINOPHEN [Concomitant]
     Indication: PROPHYLAXIS
     Route: 048
  2. REBIF [Suspect]
     Indication: MULTIPLE SCLEROSIS
     Dosage: TITRATION: 8.8MCG FOR 2 WEEKS AND 22MCG FOR 2 WEEKS
     Route: 058
     Dates: start: 20120402
  3. PLAVIX [Concomitant]
     Indication: PRODUCT USED FOR UNKNOWN INDICATION

REACTIONS (14)
  - EPISTAXIS [None]
  - WEIGHT DECREASED [None]
  - VOMITING [None]
  - PAIN [None]
  - INSOMNIA [None]
  - DIARRHOEA [None]
  - MYALGIA [None]
  - HAEMATOCHEZIA [None]
  - IRRITABILITY [None]
  - MIGRAINE [None]
  - FATIGUE [None]
  - INJECTION SITE SWELLING [None]
  - ABDOMINAL PAIN [None]
  - INJECTION SITE PAIN [None]
